FAERS Safety Report 19800292 (Version 1)
Quarter: 2021Q3

REPORT INFORMATION
  Report Type: Spontaneous
  Country: US (occurrence: US)
  Receive Date: 20210908
  Receipt Date: 20210908
  Transmission Date: 20211014
  Serious: No
  Sender: FDA-Public Use
  Company Number: US-ESPERIONTHERAPEUTICS-2021USA01061

PATIENT
  Age: 73 Year
  Sex: Female
  Weight: 82.54 kg

DRUGS (3)
  1. VASCEPA [Concomitant]
     Active Substance: ICOSAPENT ETHYL
     Dosage: UNK
     Route: 048
  2. PRALUENT [Concomitant]
     Active Substance: ALIROCUMAB
     Dosage: 150 MILLIGRAM, Q2W
  3. NEXLIZET [Suspect]
     Active Substance: BEMPEDOIC ACID\EZETIMIBE
     Indication: LOW DENSITY LIPOPROTEIN INCREASED
     Dosage: 180MG/10MG, QD
     Route: 048
     Dates: start: 202010

REACTIONS (2)
  - Musculoskeletal discomfort [Not Recovered/Not Resolved]
  - Muscle discomfort [Not Recovered/Not Resolved]
